FAERS Safety Report 12704744 (Version 1)
Quarter: 2016Q3

REPORT INFORMATION
  Report Type: Spontaneous
  Country: AU (occurrence: AU)
  Receive Date: 20160831
  Receipt Date: 20160831
  Transmission Date: 20161109
  Serious: Yes (Other)
  Sender: FDA-Public Use
  Company Number: AU-NOVOPROD-507450

PATIENT
  Age: 62 Year
  Sex: Female

DRUGS (2)
  1. ESTROFEM [Suspect]
     Active Substance: ESTRADIOL CYPIONATE
     Indication: MENOPAUSE
     Dosage: UNK
     Route: 065
  2. ESTROFEM [Suspect]
     Active Substance: ESTRADIOL CYPIONATE
     Indication: HYSTERECTOMY

REACTIONS (2)
  - Hepatic adenoma [Not Recovered/Not Resolved]
  - Gastric cancer [Unknown]
